FAERS Safety Report 21193223 (Version 1)
Quarter: 2022Q3

REPORT INFORMATION
  Report Type: Spontaneous
  Country: US (occurrence: US)
  Receive Date: 20220810
  Receipt Date: 20220810
  Transmission Date: 20221026
  Serious: Yes (Hospitalization, Other)
  Sender: FDA-Public Use
  Company Number: US-JNJFOC-20220810063

PATIENT
  Age: 66 Year
  Sex: Female

DRUGS (2)
  1. XARELTO [Suspect]
     Active Substance: RIVAROXABAN
     Indication: Peripheral vascular disorder
     Route: 048
     Dates: start: 20211006
  2. XARELTO [Suspect]
     Active Substance: RIVAROXABAN
     Dosage: TOOK 7-8 DOSES OF 20MG
     Route: 048
     Dates: start: 202207

REACTIONS (2)
  - Therapeutic procedure [Unknown]
  - Accidental overdose [Recovered/Resolved]

NARRATIVE: CASE EVENT DATE: 20220701
